FAERS Safety Report 5465817-3 (Version None)
Quarter: 2007Q3

REPORT INFORMATION
  Report Type: 
  Country: None (occurrence: None)
  Receive Date: 20070919
  Receipt Date: 20070919
  Transmission Date: 20080115
  Serious: Yes (Hospitalization)
  Sender: FDA-Public Use
  Company Number: None

PATIENT
  Age: 46 Year
  Sex: Female
  Weight: 72.5755 kg

DRUGS (1)
  1. LEVAQUIN [Suspect]
     Indication: CYSTITIS
     Dosage: 2 TABLETS 2 TIMES DAY PO
     Route: 048
     Dates: start: 20070810, end: 20070820

REACTIONS (8)
  - ARTHRALGIA [None]
  - BLINDNESS [None]
  - DIZZINESS [None]
  - DYSPNOEA [None]
  - IMPAIRED WORK ABILITY [None]
  - PRURITUS [None]
  - RASH GENERALISED [None]
  - URTICARIA [None]
